FAERS Safety Report 25351795 (Version 1)
Quarter: 2025Q2

REPORT INFORMATION
  Report Type: Other
  Country: IT (occurrence: IT)
  Receive Date: 20250523
  Receipt Date: 20250523
  Transmission Date: 20250717
  Serious: Yes (Death, Other)
  Sender: B BRAUN
  Company Number: IT-B.Braun Medical Inc.-2177287

PATIENT
  Age: 80 Year
  Sex: Female

DRUGS (4)
  1. HEPARIN SODIUM IN DEXTROSE [Suspect]
     Active Substance: HEPARIN SODIUM
     Indication: Anticoagulant therapy
  2. RAMIPRIL [Concomitant]
     Active Substance: RAMIPRIL
  3. FUROSEMIDE [Concomitant]
     Active Substance: FUROSEMIDE
  4. BISOPROLOL. [Concomitant]

REACTIONS (1)
  - Embolism [Fatal]
